FAERS Safety Report 5709644-8 (Version None)
Quarter: 2008Q2

REPORT INFORMATION
  Report Type: 
  Country: None (occurrence: None)
  Receive Date: 20080418
  Receipt Date: 20080416
  Transmission Date: 20081010
  Serious: Yes (Other)
  Sender: FDA-Public Use
  Company Number: B0516839A

PATIENT
  Age: 75 Year
  Sex: Male

DRUGS (2)
  1. PAROXETINE HCL [Suspect]
     Indication: DEPRESSION
     Dosage: 20MG UNKNOWN
     Route: 065
  2. FLUOXETINE [Concomitant]
     Dosage: 20MG PER DAY
     Route: 065

REACTIONS (1)
  - DEPENDENCE [None]
